FAERS Safety Report 14778481 (Version 2)
Quarter: 2020Q3

REPORT INFORMATION
  Report Type: Report from Study
  Country: RU (occurrence: RU)
  Receive Date: 20180419
  Receipt Date: 20180607
  Transmission Date: 20201104
  Serious: Yes (Death, Life-Threatening, Hospitalization, Other)
  Sender: FDA-Public Use
  Company Number: RU-ASTRAZENECA-2018SE49887

PATIENT
  Age: 25152 Day
  Sex: Male

DRUGS (18)
  1. MEDI4736 [Suspect]
     Active Substance: DURVALUMAB
     Indication: NON-SMALL CELL LUNG CANCER
     Route: 042
     Dates: start: 20180228, end: 20180228
  2. TREMELIMUMAB. [Suspect]
     Active Substance: TREMELIMUMAB
     Indication: NON-SMALL CELL LUNG CANCER
     Route: 042
     Dates: start: 20180228, end: 20180228
  3. OMEZ [Concomitant]
     Active Substance: OMEPRAZOLE
     Indication: GASTRIC ULCER
     Route: 048
     Dates: start: 20180319
  4. PANTOPRAZOLE [Concomitant]
     Active Substance: PANTOPRAZOLE
     Indication: GASTRIC ULCER
     Route: 042
     Dates: start: 20180319
  5. ARIFON RETARD [Concomitant]
     Indication: HYPERTENSION
     Route: 048
     Dates: start: 20180119
  6. CORINFAR [Concomitant]
     Active Substance: NIFEDIPINE
     Indication: HYPERTENSION
     Route: 048
     Dates: start: 20180201
  7. TREMELIMUMAB. [Suspect]
     Active Substance: TREMELIMUMAB
     Indication: NON-SMALL CELL LUNG CANCER
     Route: 042
     Dates: start: 20180202, end: 20180202
  8. PHOSPHALUGEL [Concomitant]
     Active Substance: ALUMINUM PHOSPHATE
     Indication: GASTRIC ULCER
     Route: 048
     Dates: start: 20180319
  9. DE?NOL [Concomitant]
     Indication: GASTRIC ULCER
     Route: 048
     Dates: start: 20180319
  10. CEFTRIAXONE. [Concomitant]
     Active Substance: CEFTRIAXONE
     Indication: GASTRIC ULCER
     Route: 042
     Dates: start: 20180319
  11. CONCOR [Concomitant]
     Active Substance: BISOPROLOL FUMARATE
     Indication: HYPERTENSION
     Route: 048
     Dates: start: 20180119
  12. MEDI4736 [Suspect]
     Active Substance: DURVALUMAB
     Indication: NON-SMALL CELL LUNG CANCER
     Route: 042
     Dates: start: 20180202, end: 20180202
  13. PEMETREXED. [Suspect]
     Active Substance: PEMETREXED
     Indication: NON-SMALL CELL LUNG CANCER
     Dosage: 860 MG/M2
     Route: 042
     Dates: start: 20180202, end: 20180202
  14. PEMETREXED. [Suspect]
     Active Substance: PEMETREXED
     Indication: NON-SMALL CELL LUNG CANCER
     Dosage: 1000 MG/M2
     Route: 042
     Dates: start: 20180228, end: 20180228
  15. CARBOPLATIN. [Suspect]
     Active Substance: CARBOPLATIN
     Indication: NON-SMALL CELL LUNG CANCER
     Dosage: 5.0 AUC
     Route: 042
     Dates: start: 20180228, end: 20180228
  16. FOLIC ACID. [Concomitant]
     Active Substance: FOLIC ACID
     Indication: PREMEDICATION
     Route: 048
     Dates: start: 20180119
  17. OCTREOTIDE. [Concomitant]
     Active Substance: OCTREOTIDE
     Indication: GASTRIC ULCER
     Route: 042
     Dates: start: 20180319
  18. CARBOPLATIN. [Suspect]
     Active Substance: CARBOPLATIN
     Indication: NON-SMALL CELL LUNG CANCER
     Dosage: 5.0 AUC
     Route: 042
     Dates: start: 20180202, end: 20180202

REACTIONS (1)
  - Gastric ulcer perforation [Fatal]

NARRATIVE: CASE EVENT DATE: 20180413
